FAERS Safety Report 4296367-8 (Version None)
Quarter: 2004Q1

REPORT INFORMATION
  Report Type: 
  Country: None (occurrence: None)
  Receive Date: 20040217
  Receipt Date: 20010823
  Transmission Date: 20041129
  Serious: Yes (Death)
  Sender: FDA-Public Use
  Company Number: 200115993US

PATIENT
  Sex: Female
  Weight: 74 kg

DRUGS (5)
  1. ALLEGRA-D [Suspect]
     Indication: HYPERSENSITIVITY
     Dosage: DOSE: 60/120
     Route: 048
     Dates: start: 20010818, end: 20010818
  2. FLONASE [Concomitant]
     Dosage: DOSE: NOT PROVIDED
  3. VASOTEC [Concomitant]
     Dosage: DOSE: NOT PROVIDED
  4. SEREVENT [Concomitant]
     Dosage: DOSE: NOT PROVIDED
  5. PULMICORT [Concomitant]
     Dosage: DOSE: NOT PROVIDED

REACTIONS (13)
  - ANAPHYLACTIC SHOCK [None]
  - ANAPHYLACTOID REACTION [None]
  - CARDIAC ARREST [None]
  - CONVULSION [None]
  - HYPOTENSION [None]
  - IMMUNOLOGY TEST ABNORMAL [None]
  - LARYNGEAL OEDEMA [None]
  - MULTI-ORGAN FAILURE [None]
  - PYREXIA [None]
  - RASH [None]
  - RESPIRATORY ARREST [None]
  - THROAT TIGHTNESS [None]
  - TRACHEAL OEDEMA [None]
